FAERS Safety Report 8467929 (Version 2)
Quarter: 2013Q1

REPORT INFORMATION
  Report Type: Spontaneous
  Country: CA (occurrence: CA)
  Receive Date: 20120320
  Receipt Date: 20130325
  Transmission Date: 20140127
  Serious: Yes (Hospitalization)
  Sender: FDA-Public Use
  Company Number: CA-JNJFOC-20120305368

PATIENT
  Age: 41 Year
  Sex: Female
  Weight: 52.2 kg

DRUGS (2)
  1. REMICADE [Suspect]
     Indication: RHEUMATOID ARTHRITIS
     Route: 042
     Dates: start: 201101
  2. REMICADE [Suspect]
     Indication: RHEUMATOID ARTHRITIS
     Route: 042
     Dates: start: 20120201, end: 201203

REACTIONS (3)
  - Abasia [Recovering/Resolving]
  - Drug ineffective [Not Recovered/Not Resolved]
  - Adverse event [Unknown]
